FAERS Safety Report 11830798 (Version 2)
Quarter: 2015Q4

REPORT INFORMATION
  Report Type: Spontaneous
  Country: US (occurrence: US)
  Receive Date: 20151214
  Receipt Date: 20151230
  Transmission Date: 20160305
  Serious: Yes (Other)
  Sender: FDA-Public Use
  Company Number: US-BEH-2015056637

PATIENT
  Age: 60 Year
  Sex: Female
  Weight: 85 kg

DRUGS (27)
  1. PREDNISONE. [Concomitant]
     Active Substance: PREDNISONE
  2. OXYCODONE [Concomitant]
     Active Substance: OXYCODONE
  3. FUROSEMIDE. [Concomitant]
     Active Substance: FUROSEMIDE
  4. SODIUM CHLORIDE. [Concomitant]
     Active Substance: SODIUM CHLORIDE
  5. EPIPEN [Concomitant]
     Active Substance: EPINEPHRINE
  6. PANTOPRAZOLE [Concomitant]
     Active Substance: PANTOPRAZOLE SODIUM
  7. ZEMAIRA [Suspect]
     Active Substance: .ALPHA.1-PROTEINASE INHIBITOR HUMAN
     Indication: ALPHA-1 ANTI-TRYPSIN DEFICIENCY
     Route: 042
     Dates: start: 20150602
  8. SPIRONOLACTONE. [Concomitant]
     Active Substance: SPIRONOLACTONE
  9. CORGARD [Concomitant]
     Active Substance: NADOLOL
  10. MYCOPHENOLATE [Concomitant]
     Active Substance: MYCOPHENOLIC ACID
  11. TACROLIMUS. [Concomitant]
     Active Substance: TACROLIMUS
  12. LASIX [Concomitant]
     Active Substance: FUROSEMIDE
  13. DIPHENHYDRAMINE. [Concomitant]
     Active Substance: DIPHENHYDRAMINE
  14. SYMBICORT [Concomitant]
     Active Substance: BUDESONIDE\FORMOTEROL FUMARATE DIHYDRATE
  15. XIFAXAN [Concomitant]
     Active Substance: RIFAXIMIN
  16. NYSTATIN. [Concomitant]
     Active Substance: NYSTATIN
  17. VALACYCLOVIR [Concomitant]
     Active Substance: VALACYCLOVIR HYDROCHLORIDE
  18. LORAZEPAM. [Concomitant]
     Active Substance: LORAZEPAM
  19. POTASSIUM [Concomitant]
     Active Substance: POTASSIUM
  20. LMX [Concomitant]
     Active Substance: LIDOCAINE
  21. CARAFATE [Concomitant]
     Active Substance: SUCRALFATE
  22. ANTIVERT [Concomitant]
     Active Substance: MECLIZINE HYDROCHLORIDE
  23. TEMAZEPAM. [Concomitant]
     Active Substance: TEMAZEPAM
  24. NADOLOL. [Concomitant]
     Active Substance: NADOLOL
  25. SULFAMETHOXAZOLE [Concomitant]
     Active Substance: SULFAMETHOXAZOLE
  26. ASPIRIN. [Concomitant]
     Active Substance: ASPIRIN
  27. METOPROLOL [Concomitant]
     Active Substance: METOPROLOL

REACTIONS (4)
  - Hepatic cancer [Unknown]
  - Pulmonary mass [Unknown]
  - Liver transplant [Unknown]
  - Bronchitis [Unknown]

NARRATIVE: CASE EVENT DATE: 20151126
